FAERS Safety Report 4602010-8 (Version None)
Quarter: 2005Q1

REPORT INFORMATION
  Report Type: 
  Country: None (occurrence: None)
  Receive Date: 20050215
  Receipt Date: 20041018
  Transmission Date: 20050727
  Serious: Yes (Other)
  Sender: FDA-Public Use
  Company Number: 384086

PATIENT
  Sex: 0

DRUGS (1)
  1. PEGASYS [Suspect]
     Dosage: SUBCUTANEOUS
     Route: 058

REACTIONS (3)
  - ANAEMIA [None]
  - NEUTROPENIA [None]
  - THROMBOCYTOPENIA [None]
